FAERS Safety Report 11912846 (Version 1)
Quarter: 2016Q1

REPORT INFORMATION
  Report Type: Spontaneous
  Country: US (occurrence: None)
  Receive Date: 20160112
  Receipt Date: 20160112
  Transmission Date: 20160526
  Serious: Yes (Other)
  Sender: FDA-Public Use
  Company Number: None

PATIENT
  Age: 68 Year
  Sex: Female
  Weight: 115.21 kg

DRUGS (7)
  1. VITAMIN C [Concomitant]
     Active Substance: ASCORBIC ACID
  2. IBUPROFEN. [Concomitant]
     Active Substance: IBUPROFEN
  3. VITAMIN C [Concomitant]
     Active Substance: ASCORBIC ACID
  4. GLUCOSAMINE AND MSM [Concomitant]
  5. SYNTHROID [Suspect]
     Active Substance: LEVOTHYROXINE SODIUM
     Indication: HYPOTHYROIDISM
     Dosage: SYNTHROID 150 MCG (3 - 50MCG) AT BEDTIME P.O.
     Route: 048
     Dates: start: 20120131, end: 20160111
  6. SYNTHROID [Concomitant]
     Active Substance: LEVOTHYROXINE SODIUM
  7. ASPIRIN. [Concomitant]
     Active Substance: ASPIRIN

REACTIONS (8)
  - Somnolence [None]
  - Mood altered [None]
  - Product physical issue [None]
  - Alopecia [None]
  - Tinnitus [None]
  - Fatigue [None]
  - Hunger [None]
  - Feeling jittery [None]

NARRATIVE: CASE EVENT DATE: 20151123
